FAERS Safety Report 8555641-7 (Version None)
Quarter: 2012Q3

REPORT INFORMATION
  Report Type: 
  Country: None (occurrence: None)
  Receive Date: 20120731
  Receipt Date: 20120717
  Transmission Date: 20120928
  Serious: Yes (Life-Threatening, Hospitalization, Other)
  Sender: FDA-Public Use
  Company Number: CH-ELI_LILLY_AND_COMPANY-CH201207005930

PATIENT
  Age: 19 Year
  Sex: Male

DRUGS (3)
  1. HALOPERIDOL [Concomitant]
     Dosage: 3 MG, UNK
     Dates: start: 20120321, end: 20120322
  2. ZYPREXA [Suspect]
     Indication: PERSONALITY DISORDER
     Dosage: 10 MG, QD
     Route: 048
     Dates: start: 20120319, end: 20120322
  3. HALOPERIDOL [Concomitant]
     Indication: PERSONALITY DISORDER
     Dosage: 1 MG, UNK
     Dates: start: 20120321, end: 20120321

REACTIONS (15)
  - HYPOTENSION [None]
  - GAIT DISTURBANCE [None]
  - TACHYCARDIA [None]
  - HYPERTENSION [None]
  - SPEECH DISORDER [None]
  - OPISTHOTONUS [None]
  - HALLUCINATION, AUDITORY [None]
  - ENCEPHALOPATHY [None]
  - ALTERED STATE OF CONSCIOUSNESS [None]
  - BRADYCARDIA [None]
  - ACUTE DISSEMINATED ENCEPHALOMYELITIS [None]
  - AGITATION [None]
  - DEMENTIA [None]
  - ABNORMAL BEHAVIOUR [None]
  - YAWNING [None]
